FAERS Safety Report 16765834 (Version 1)
Quarter: 2019Q3

REPORT INFORMATION
  Report Type: Spontaneous
  Country: JP (occurrence: JP)
  Receive Date: 20190903
  Receipt Date: 20190903
  Transmission Date: 20191005
  Serious: Yes (Other)
  Sender: FDA-Public Use
  Company Number: JP-TEVA-2019-JP-1102204

PATIENT
  Age: 43 Year
  Sex: Male

DRUGS (1)
  1. PREDNISOLONE. [Suspect]
     Active Substance: PREDNISOLONE
     Dosage: DOSE: 10-40MG; INITIATED AFTER A NON-DIAGNOSTIC BIOPSY AND ADMINISTERED UNTIL CURRENT PRESENTATION
     Route: 048

REACTIONS (2)
  - Cell death [Recovering/Resolving]
  - Laboratory test interference [Recovering/Resolving]
